FAERS Safety Report 9953594 (Version 1)
Quarter: 2014Q1

REPORT INFORMATION
  Report Type: Report from Study
  Country: US (occurrence: US)
  Receive Date: 20140304
  Receipt Date: 20140304
  Transmission Date: 20141002
  Serious: No
  Sender: FDA-Public Use
  Company Number: US-ABBVIE-13P-163-1082270-00

PATIENT
  Age: 45 Year
  Sex: Female

DRUGS (5)
  1. HUMIRA [Suspect]
     Indication: PSORIATIC ARTHROPATHY
     Dates: start: 20120724
  2. ZOLOFT [Concomitant]
     Indication: DEPRESSION
  3. ZOLOFT [Concomitant]
     Indication: ANXIETY
  4. TETANUS VACCINATION [Concomitant]
     Indication: PRODUCT USED FOR UNKNOWN INDICATION
  5. KEFLEX [Concomitant]
     Indication: PRODUCT USED FOR UNKNOWN INDICATION
     Dosage: 250 MG DAILY

REACTIONS (1)
  - Laceration [Recovering/Resolving]
